FAERS Safety Report 5331038-8 (Version None)
Quarter: 2007Q2

REPORT INFORMATION
  Report Type: 
  Country: None (occurrence: None)
  Receive Date: 20070522
  Receipt Date: 20070518
  Transmission Date: 20071010
  Serious: Yes (Hospitalization)
  Sender: FDA-Public Use
  Company Number: A0651959A

PATIENT
  Age: 78 Year
  Sex: Male

DRUGS (3)
  1. COREG [Suspect]
     Dosage: 3.125MG TWICE PER DAY
     Route: 048
     Dates: start: 20030101
  2. LASIX [Concomitant]
  3. ENALAPRIL [Concomitant]

REACTIONS (4)
  - CARDIAC FAILURE CONGESTIVE [None]
  - DIZZINESS [None]
  - DYSPNOEA [None]
  - TREMOR [None]
